FAERS Safety Report 6394515-7 (Version None)
Quarter: 2009Q4

REPORT INFORMATION
  Report Type: 
  Country: None (occurrence: None)
  Receive Date: 20091009
  Receipt Date: 20090929
  Transmission Date: 20100525
  Serious: Yes (Hospitalization)
  Sender: FDA-Public Use
  Company Number: US-BAYER-200928568NA

PATIENT
  Age: 38 Year
  Sex: Female

DRUGS (4)
  1. YAZ [Suspect]
     Indication: CONTRACEPTION
     Route: 048
     Dates: start: 20070701
  2. EFFEXOR [Concomitant]
     Indication: DEPRESSION
     Dosage: TOTAL DAILY DOSE: 300 MG
     Route: 048
  3. XANAX [Concomitant]
  4. SEROQUEL [Concomitant]

REACTIONS (3)
  - DYSFUNCTIONAL UTERINE BLEEDING [None]
  - MENSTRUATION IRREGULAR [None]
  - ROAD TRAFFIC ACCIDENT [None]
